FAERS Safety Report 15806151 (Version 2)
Quarter: 2019Q1

REPORT INFORMATION
  Report Type: Spontaneous
  Country: RO (occurrence: RO)
  Receive Date: 20190110
  Receipt Date: 20190114
  Transmission Date: 20190417
  Serious: Yes (Life-Threatening, Other)
  Sender: FDA-Public Use
  Company Number: RO-ASTRAZENECA-2019SE04057

PATIENT
  Age: 47 Year
  Sex: Female

DRUGS (4)
  1. ACETYLSALICYLIC ACID [Suspect]
     Active Substance: ASPIRIN
     Indication: ANTIPLATELET THERAPY
     Route: 065
  2. ENZYME CONVERSION INHIBITORS [Concomitant]
  3. TICAGRELOR. [Suspect]
     Active Substance: TICAGRELOR
     Indication: ANTIPLATELET THERAPY
     Route: 048
  4. BETA-BLOCKERS [Concomitant]

REACTIONS (5)
  - Trifascicular block [Recovered/Resolved]
  - Arteriospasm coronary [Unknown]
  - Cardiac arrest [Recovered/Resolved]
  - Conduction disorder [Unknown]
  - Paraesthesia [Unknown]
